FAERS Safety Report 12820303 (Version 11)
Quarter: 2018Q1

REPORT INFORMATION
  Report Type: Report from Study
  Country: CO (occurrence: CO)
  Receive Date: 20161006
  Receipt Date: 20180119
  Transmission Date: 20180508
  Serious: Yes (Hospitalization, Other)
  Sender: FDA-Public Use
  Company Number: CO-BIOGEN-2016BI00301427

PATIENT
  Age: 22 Year
  Sex: Female
  Weight: 58 kg

DRUGS (2)
  1. TYSABRI [Suspect]
     Active Substance: NATALIZUMAB
     Indication: MULTIPLE SCLEROSIS
     Route: 042
     Dates: start: 20140124, end: 20160901
  2. TYSABRI [Suspect]
     Active Substance: NATALIZUMAB
     Route: 042
     Dates: start: 2016

REACTIONS (13)
  - Progressive multifocal leukoencephalopathy [Recovered/Resolved with Sequelae]
  - Partial seizures [Recovered/Resolved]
  - Intracranial mass [Unknown]
  - Multiple sclerosis relapse [Not Recovered/Not Resolved]
  - Nausea [Unknown]
  - Depression [Unknown]
  - Anxiety [Unknown]
  - Migraine [Unknown]
  - Vomiting [Unknown]
  - Pyrexia [Recovered/Resolved]
  - Hypoxia [Not Recovered/Not Resolved]
  - Immune reconstitution inflammatory syndrome [Recovered/Resolved with Sequelae]
  - Autonomic neuropathy [Unknown]

NARRATIVE: CASE EVENT DATE: 201606
